FAERS Safety Report 17908558 (Version 2)
Quarter: 2020Q3

REPORT INFORMATION
  Report Type: Spontaneous
  Country: US (occurrence: US)
  Receive Date: 20200617
  Receipt Date: 20200701
  Transmission Date: 20201103
  Serious: Yes (Hospitalization)
  Sender: FDA-Public Use
  Company Number: US-GILEAD-2020-0472776

PATIENT
  Age: 46 Year
  Sex: Male
  Weight: 95 kg

DRUGS (19)
  1. FENTANYL. [Concomitant]
     Active Substance: FENTANYL
  2. ENOXAPARIN [Concomitant]
     Active Substance: ENOXAPARIN
  3. REMDESIVIR. [Suspect]
     Active Substance: REMDESIVIR
     Indication: COVID-19
     Dosage: 200 MG, ONCE
     Route: 042
     Dates: start: 20200609, end: 20200609
  4. CEFTRIAXONE. [Concomitant]
     Active Substance: CEFTRIAXONE
  5. MIDAZOLAM. [Concomitant]
     Active Substance: MIDAZOLAM
  6. ASCORBIC ACID. [Concomitant]
     Active Substance: ASCORBIC ACID
  7. METHYLPREDNISOLONE. [Concomitant]
     Active Substance: METHYLPREDNISOLONE
  8. DUONEB [Concomitant]
     Active Substance: ALBUTEROL SULFATE\IPRATROPIUM BROMIDE
  9. AZITHROMYCIN ANHYDROUS. [Concomitant]
     Active Substance: AZITHROMYCIN ANHYDROUS
  10. PROPOFOL. [Concomitant]
     Active Substance: PROPOFOL
  11. NORMAL SALINE [Concomitant]
     Active Substance: SODIUM CHLORIDE
  12. ACETAMINOPHEN. [Concomitant]
     Active Substance: ACETAMINOPHEN
  13. ZINC SULFATE. [Concomitant]
     Active Substance: ZINC SULFATE
  14. INSULIN DETEMIR [Concomitant]
     Active Substance: INSULIN DETEMIR
  15. REMDESIVIR. [Suspect]
     Active Substance: REMDESIVIR
     Dosage: 100 MG, QD
     Route: 042
     Dates: start: 20200612, end: 20200619
  16. INSULIN REGULAR [INSULIN BOVINE] [Concomitant]
     Active Substance: INSULIN BEEF
  17. THIAMINE. [Concomitant]
     Active Substance: THIAMINE
  18. FAMOTIDINE. [Concomitant]
     Active Substance: FAMOTIDINE
  19. REMDESIVIR. [Suspect]
     Active Substance: REMDESIVIR
     Dosage: 100 MG, QD
     Route: 042
     Dates: start: 20200610, end: 20200610

REACTIONS (1)
  - Blood creatinine increased [Recovered/Resolved]

NARRATIVE: CASE EVENT DATE: 20200611
